FAERS Safety Report 7049783-5 (Version None)
Quarter: 2010Q4

REPORT INFORMATION
  Report Type: 
  Country: None (occurrence: None)
  Receive Date: 20101018
  Receipt Date: 20101015
  Transmission Date: 20110411
  Serious: Yes (Hospitalization)
  Sender: FDA-Public Use
  Company Number: CH-BAYER-201042389GPV

PATIENT
  Age: 62 Year
  Sex: Male

DRUGS (11)
  1. ASPIRIN [Suspect]
     Indication: PRODUCT USED FOR UNKNOWN INDICATION
     Dosage: TOTAL DAILY DOSE: 100 MG
     Route: 048
     Dates: end: 20100522
  2. SINTROM [Suspect]
     Indication: PRODUCT USED FOR UNKNOWN INDICATION
     Route: 048
     Dates: end: 20100522
  3. METOPROLOL SUCCINATE [Concomitant]
     Route: 048
  4. TOREM [Concomitant]
     Route: 048
  5. CIBACEN [Concomitant]
     Route: 048
  6. SORTIS [Concomitant]
     Route: 048
  7. NITRODERM [Concomitant]
     Route: 062
  8. ALDACTONE [Concomitant]
     Route: 048
  9. GLUCOPHAGE [Concomitant]
     Route: 048
  10. METOLAZONE [Concomitant]
     Route: 048
  11. LEXOTANIL [Concomitant]

REACTIONS (2)
  - PROTHROMBIN TIME PROLONGED [None]
  - SUBDURAL HAEMATOMA [None]
